FAERS Safety Report 8793407 (Version 1)
Quarter: 2012Q4

REPORT INFORMATION
  Report Type: 
  Country: CH (occurrence: CH)
  Receive Date: 20120917
  Receipt Date: 20120917
  Transmission Date: 20130627
  Serious: Yes (Hospitalization)
  Sender: FDA-Public Use
  Company Number: CH-ASTRAZENECA-2012SE70582

PATIENT
  Age: 81 Year
  Sex: Male
  Weight: 56 kg

DRUGS (10)
  1. NEXIUM [Suspect]
     Route: 048
     Dates: start: 201206, end: 201206
  2. AUGMENTIN [Suspect]
     Route: 048
     Dates: start: 20120525, end: 20120610
  3. LYRICA [Suspect]
     Route: 048
     Dates: start: 201206, end: 201206
  4. VIREAD [Suspect]
     Indication: HIV INFECTION
     Route: 048
     Dates: start: 2003, end: 20120621
  5. KALETRA [Concomitant]
     Indication: HIV INFECTION
     Route: 048
     Dates: start: 2003, end: 20120621
  6. MARCOUMAR [Concomitant]
  7. TEMESTA [Concomitant]
  8. PERENTEROL [Concomitant]
  9. MAGNESIUM DIASPORAL [Concomitant]
  10. CLEXANE [Concomitant]
     Route: 058
     Dates: start: 201206, end: 201206

REACTIONS (5)
  - Renal failure acute [Unknown]
  - Muscle contractions involuntary [Unknown]
  - Renal failure chronic [Recovering/Resolving]
  - Renal tubular necrosis [Unknown]
  - Tremor [Unknown]
